FAERS Safety Report 23125835 (Version 1)
Quarter: 2023Q4

REPORT INFORMATION
  Report Type: Spontaneous
  Country: US (occurrence: US)
  Receive Date: 20231030
  Receipt Date: 20231030
  Transmission Date: 20240110
  Serious: No
  Sender: FDA-Public Use
  Company Number: US-MYLANLABS-2023M1113130

PATIENT
  Sex: Female

DRUGS (1)
  1. NEURONTIN [Suspect]
     Active Substance: GABAPENTIN
     Indication: Neuropathy peripheral
     Dosage: 200 MILLIGRAM, QD (TAKE 1 (TWO) CAPSULES BY MOUTH AT BEDTIME)
     Route: 048

REACTIONS (1)
  - Off label use [Unknown]
